FAERS Safety Report 5234564-5 (Version None)
Quarter: 2007Q1

REPORT INFORMATION
  Report Type: 
  Country: None (occurrence: None)
  Receive Date: 20070209
  Receipt Date: 20070126
  Transmission Date: 20070707
  Serious: Yes (Life-Threatening, Other)
  Sender: FDA-Public Use
  Company Number: JP-SANOFI-SYNTHELABO-A01200507322

PATIENT
  Sex: Female
  Weight: 45 kg

DRUGS (14)
  1. LACTATED RINGER'S [Concomitant]
     Route: 042
     Dates: start: 20051017, end: 20051017
  2. SCOPOLAMINE BUTYLBROMIDE [Concomitant]
     Indication: ABDOMINAL PAIN
     Route: 042
     Dates: start: 20051017, end: 20051017
  3. DOMPERIDONE [Concomitant]
     Route: 054
     Dates: start: 20051016, end: 20051017
  4. MAGNESIUM OXIDE [Concomitant]
     Indication: CONSTIPATION
     Route: 048
     Dates: start: 20051015, end: 20051017
  5. DAI-KENCHU-TO [Concomitant]
     Indication: CONSTIPATION
     Route: 048
     Dates: start: 20051015, end: 20051017
  6. DEXAMETHASONE TAB [Concomitant]
     Indication: PROPHYLAXIS OF NAUSEA AND VOMITING
     Route: 042
     Dates: start: 20051015, end: 20051017
  7. GASTER [Concomitant]
  8. PRIMPERAN [Concomitant]
  9. NORVASC [Concomitant]
     Indication: HYPERTENSION
     Route: 048
     Dates: start: 20051015, end: 20051017
  10. ATARAX [Concomitant]
     Route: 042
     Dates: start: 20051016, end: 20051017
  11. KYTRIL [Concomitant]
     Indication: PROPHYLAXIS OF NAUSEA AND VOMITING
     Route: 042
     Dates: start: 20051015, end: 20051017
  12. FLUOROURACIL [Suspect]
     Indication: COLON CANCER
     Dosage: 572 MG/BODY=400 MG/M2 BOLUS THEN 858 MG/BODY=600 MG/M2 INFUSION D1-2
     Route: 042
     Dates: start: 20051015, end: 20051016
  13. LEUCOVORIN CALCIUM [Concomitant]
     Indication: COLON CANCER
     Route: 042
     Dates: start: 20051015, end: 20051016
  14. OXALIPLATIN [Suspect]
     Indication: COLON CANCER
     Dosage: 121.5 MG/BODY=85 MG/M2 INFUSION D1
     Route: 042
     Dates: start: 20051015, end: 20051015

REACTIONS (10)
  - BLOOD PRESSURE SYSTOLIC DECREASED [None]
  - CONVULSION [None]
  - DECREASED APPETITE [None]
  - DEPRESSED LEVEL OF CONSCIOUSNESS [None]
  - HYPERAMMONAEMIA [None]
  - LEFT VENTRICULAR FAILURE [None]
  - METABOLIC ACIDOSIS [None]
  - PULMONARY CONGESTION [None]
  - RENAL FAILURE ACUTE [None]
  - VOMITING [None]
